FAERS Safety Report 11433663 (Version 2)
Quarter: 2017Q2

REPORT INFORMATION
  Report Type: Report from Study
  Country: None (occurrence: CO)
  Receive Date: 20150831
  Receipt Date: 20170630
  Transmission Date: 20170829
  Serious: Yes (Hospitalization)
  Sender: FDA-Public Use
  Company Number: CO-ABBVIE-15K-036-1452799-00

PATIENT
  Age: 84 Year
  Sex: Male
  Weight: 70 kg

DRUGS (4)
  1. HUMIRA [Suspect]
     Active Substance: ADALIMUMAB
     Indication: COLITIS ULCERATIVE
     Route: 058
     Dates: start: 20131129
  2. FOLIC ACID. [Concomitant]
     Active Substance: FOLIC ACID
     Indication: PRODUCT USED FOR UNKNOWN INDICATION
  3. HUMIRA [Suspect]
     Active Substance: ADALIMUMAB
     Route: 058
     Dates: start: 20170627
  4. AZATHIOPRINE. [Concomitant]
     Active Substance: AZATHIOPRINE
     Indication: PRODUCT USED FOR UNKNOWN INDICATION

REACTIONS (5)
  - Large intestinal obstruction [Recovered/Resolved]
  - Dysuria [Recovered/Resolved]
  - Prostatic operation [Recovered/Resolved]
  - Unevaluable event [Recovered/Resolved]
  - Incontinence [Unknown]

NARRATIVE: CASE EVENT DATE: 2015
